FAERS Safety Report 7297174-4 (Version None)
Quarter: 2011Q1

REPORT INFORMATION
  Report Type: 
  Country: None (occurrence: None)
  Receive Date: 20110216
  Receipt Date: 20110210
  Transmission Date: 20110831
  Serious: No
  Sender: FDA-Public Use
  Company Number: US-PFIZER INC-2010071808

PATIENT
  Sex: Female
  Weight: 44.444 kg

DRUGS (9)
  1. XALATAN [Suspect]
     Dosage: UNK
     Route: 047
     Dates: start: 20100602, end: 20100604
  2. OMEPRAZOLE [Concomitant]
     Dosage: UNK
  3. LUMIGAN [Suspect]
     Indication: OPEN ANGLE GLAUCOMA
     Dosage: UNK
     Dates: end: 20100501
  4. METFORMIN [Concomitant]
     Indication: DIABETES MELLITUS
     Dosage: UNK
  5. FELODIPINE [Concomitant]
     Dosage: UNK
  6. XALATAN [Suspect]
     Indication: OPEN ANGLE GLAUCOMA
     Dosage: UNK
     Route: 047
     Dates: start: 20080101, end: 20100301
  7. HYDROCHLOROTHIAZIDE [Concomitant]
     Dosage: UNK
  8. VALSARTAN [Concomitant]
     Dosage: UNK
  9. ACETYLSALICYLIC ACID [Concomitant]
     Dosage: UNK

REACTIONS (9)
  - OEDEMA [None]
  - EYE DISORDER [None]
  - GROWTH OF EYELASHES [None]
  - ERYTHEMA [None]
  - EYE IRRITATION [None]
  - BLOOD IRON DECREASED [None]
  - DERMATITIS CONTACT [None]
  - OCULAR HYPERAEMIA [None]
  - SKIN DISCOLOURATION [None]
